FAERS Safety Report 20479637 (Version 1)
Quarter: 2022Q1

REPORT INFORMATION
  Report Type: Spontaneous
  Country: US (occurrence: None)
  Receive Date: 20220215
  Receipt Date: 20220215
  Transmission Date: 20220423
  Serious: Yes (Hospitalization)
  Sender: FDA-Public Use
  Company Number: None

PATIENT
  Age: 6 Year
  Sex: Female

DRUGS (1)
  1. EVEROLIMUS [Suspect]
     Active Substance: EVEROLIMUS
     Indication: Tuberous sclerosis complex
     Dosage: FREQUENCY : DAILY;?
     Route: 048
     Dates: start: 2018

REACTIONS (7)
  - COVID-19 [None]
  - Pneumonia [None]
  - Tremor [None]
  - Diarrhoea [None]
  - Blood magnesium abnormal [None]
  - Blood potassium decreased [None]
  - Alopecia [None]

NARRATIVE: CASE EVENT DATE: 20210921
